FAERS Safety Report 19433238 (Version 1)
Quarter: 2021Q2

REPORT INFORMATION
  Report Type: Spontaneous
  Country: GB (occurrence: GB)
  Receive Date: 20210618
  Receipt Date: 20210618
  Transmission Date: 20210717
  Serious: Yes (Other)
  Sender: FDA-Public Use
  Company Number: GB-TEVA-2021-GB-1923085

PATIENT
  Age: 35 Year
  Sex: Female
  Weight: 76 kg

DRUGS (3)
  1. CERAZETTE [Concomitant]
     Indication: CONTRACEPTION
     Dates: start: 20130101
  2. SERTRALINE [Concomitant]
     Active Substance: SERTRALINE HYDROCHLORIDE
     Indication: GENERALISED ANXIETY DISORDER
     Dates: start: 20130101
  3. PROGESTERONE. [Suspect]
     Active Substance: PROGESTERONE
     Route: 065

REACTIONS (6)
  - Dyspnoea [Recovering/Resolving]
  - Somatic symptom disorder of pregnancy [Recovered/Resolved]
  - Fatigue [Recovered/Resolved]
  - Headache [Recovered/Resolved]
  - Nausea [Recovered/Resolved]
  - Malaise [Recovered/Resolved]

NARRATIVE: CASE EVENT DATE: 20210401
